FAERS Safety Report 9472180 (Version 4)
Quarter: 2013Q4

REPORT INFORMATION
  Report Type: Spontaneous
  Country: DK (occurrence: DK)
  Receive Date: 20130823
  Receipt Date: 20131206
  Transmission Date: 20140711
  Serious: Yes (Hospitalization)
  Sender: FDA-Public Use
  Company Number: DK-VERTEX PHARMACEUTICALS INC-2013-009003

PATIENT
  Age: 28 Year
  Sex: Female
  Weight: 51 kg

DRUGS (5)
  1. INCIVO [Suspect]
     Indication: HEPATITIS C
     Dosage: 375 MG 2 TABLETS 3 TIMES DAILY
     Route: 065
     Dates: start: 20121015, end: 20130106
  2. RIBAVIRIN [Concomitant]
     Indication: HEPATITIS C
     Dosage: DOSAGE FORM: UNSPECIFIED
     Route: 065
     Dates: start: 20121015
  3. PEGINTRON [Concomitant]
     Indication: HEPATITIS C
     Dosage: DOSAGE FORM: SOLUTION FOR INJECTION
     Route: 065
     Dates: start: 20121015
  4. CIPRALEX [Concomitant]
     Indication: DEPRESSION
     Dosage: DOSAGE FORM: UNSPECIFIED
     Route: 048
     Dates: start: 20091113
  5. ZYRTEC [Concomitant]
     Indication: PRURITUS
     Route: 048
     Dates: start: 20121022

REACTIONS (5)
  - Feeding disorder [Recovered/Resolved]
  - Gingivitis [Recovered/Resolved]
  - General physical health deterioration [Recovered/Resolved]
  - Vomiting [Recovered/Resolved]
  - Nausea [Recovered/Resolved]
